FAERS Safety Report 5317652-4 (Version None)
Quarter: 2007Q2

REPORT INFORMATION
  Report Type: 
  Country: None (occurrence: None)
  Receive Date: 20070507
  Receipt Date: 20070427
  Transmission Date: 20071010
  Serious: Yes (Other)
  Sender: FDA-Public Use
  Company Number: PHBS2007JP05966

PATIENT
  Age: 69 Year
  Sex: Female
  Weight: 58 kg

DRUGS (6)
  1. AREDIA [Suspect]
     Indication: METASTASES TO BONE
     Dosage: 90 MG, UNK
     Route: 042
     Dates: start: 20060512, end: 20070330
  2. FOSAMAX [Concomitant]
     Route: 048
  3. FURTULON [Concomitant]
     Indication: BREAST CANCER RECURRENT
     Dosage: 800 G/DAY
     Route: 048
     Dates: start: 20060224, end: 20070104
  4. PROGESTON WYETH [Concomitant]
     Indication: BREAST CANCER RECURRENT
     Dosage: 800 G/DAY
     Route: 048
     Dates: start: 20060224
  5. PROGESTON WYETH [Concomitant]
     Dosage: 400 G/DAY
     Route: 048
     Dates: end: 20060907
  6. ANASTROZOLE [Concomitant]
     Indication: BREAST CANCER RECURRENT
     Dosage: 180 MG/DAY
     Route: 048
     Dates: start: 20070105

REACTIONS (3)
  - BONE DISORDER [None]
  - OSTEONECROSIS [None]
  - RED BLOOD CELL COUNT DECREASED [None]
